FAERS Safety Report 23054517 (Version 2)
Quarter: 2023Q4

REPORT INFORMATION
  Report Type: Report from Study
  Country: US (occurrence: US)
  Receive Date: 20231011
  Receipt Date: 20231017
  Transmission Date: 20240109
  Serious: Yes (Other)
  Sender: FDA-Public Use
  Company Number: US-ABBVIE-5443373

PATIENT
  Sex: Female

DRUGS (1)
  1. HUMIRA [Suspect]
     Active Substance: ADALIMUMAB
     Indication: Psoriatic arthropathy
     Dosage: FORM STRENGTH: 40 MILLIGRAM?START DATE : YEARS AGO
     Route: 058

REACTIONS (9)
  - Sacral pain [Recovered/Resolved]
  - Sciatica [Recovering/Resolving]
  - Sciatica [Recovered/Resolved]
  - Spinal pain [Recovering/Resolving]
  - Back pain [Recovering/Resolving]
  - Hypertension [Unknown]
  - Hypothyroidism [Unknown]
  - Psoriasis [Unknown]
  - Sacral pain [Recovering/Resolving]

NARRATIVE: CASE EVENT DATE: 20130101
